FAERS Safety Report 7774821-1 (Version None)
Quarter: 2011Q3

REPORT INFORMATION
  Report Type: 
  Country: None (occurrence: None)
  Receive Date: 20110923
  Receipt Date: 20110913
  Transmission Date: 20111222
  Serious: Yes (Hospitalization)
  Sender: FDA-Public Use
  Company Number: JP-PFIZER INC-2011216082

PATIENT
  Age: 29 Year
  Sex: Female
  Weight: 60 kg

DRUGS (4)
  1. KINDAVATE [Concomitant]
     Indication: PRURITUS
     Dosage: UNK
     Route: 061
     Dates: start: 20100921
  2. CRIZOTINIB [Suspect]
     Indication: NON-SMALL CELL LUNG CANCER
     Dosage: 250 MG, 2X/DAY
     Route: 048
     Dates: start: 20100720, end: 20110913
  3. OLOPATADINE HCL [Concomitant]
     Indication: PRURITUS
     Dosage: 1 TABLET, AS NEEDED
     Route: 048
     Dates: start: 20110426
  4. MILMAG [Concomitant]
     Indication: CONSTIPATION
     Dosage: 2 TABLETS,  AS NEEDED
     Route: 048
     Dates: start: 20110510

REACTIONS (1)
  - PULMONARY ARTERY THROMBOSIS [None]
